FAERS Safety Report 4878695-8 (Version None)
Quarter: 2006Q1

REPORT INFORMATION
  Report Type: 
  Country: None (occurrence: None)
  Receive Date: 20060112
  Receipt Date: 20051122
  Transmission Date: 20060701
  Serious: Yes (Life-Threatening, Hospitalization, Disabling, Other)
  Sender: FDA-Public Use
  Company Number: PHRM2005FR03015

PATIENT
  Age: 64 Year
  Sex: Female

DRUGS (4)
  1. FEMARA [Suspect]
     Indication: BREAST CANCER METASTATIC
     Dosage: 2.5 MG, QD
     Route: 048
     Dates: start: 20050330, end: 20050901
  2. FEMARA [Suspect]
     Dates: start: 20051101
  3. DIFFU K [Concomitant]
  4. NOCTAMID [Concomitant]

REACTIONS (3)
  - FATIGUE [None]
  - INTESTINAL INFARCTION [None]
  - INTESTINAL RESECTION [None]
